FAERS Safety Report 5788077-2 (Version None)
Quarter: 2008Q2

REPORT INFORMATION
  Report Type: 
  Country: None (occurrence: None)
  Receive Date: 20080625
  Receipt Date: 20080623
  Transmission Date: 20081010
  Serious: Yes (Hospitalization)
  Sender: FDA-Public Use
  Company Number: FR-WYE-G01415808

PATIENT
  Sex: Male
  Weight: 22 kg

DRUGS (1)
  1. ADVIL [Suspect]
     Indication: HEADACHE
     Dosage: ONE DOSE-FORM
     Route: 048
     Dates: start: 20080314, end: 20080316

REACTIONS (7)
  - CHEILITIS [None]
  - GENERAL PHYSICAL HEALTH DETERIORATION [None]
  - LYMPHADENOPATHY [None]
  - MALNUTRITION [None]
  - PRURITUS [None]
  - STEVENS-JOHNSON SYNDROME [None]
  - URINARY RETENTION [None]
